FAERS Safety Report 17937638 (Version 1)
Quarter: 2020Q2

REPORT INFORMATION
  Report Type: Report from Study
  Country: US (occurrence: US)
  Receive Date: 20200624
  Receipt Date: 20200624
  Transmission Date: 20200714
  Serious: No
  Sender: FDA-Public Use
  Company Number: NVSC2020US174604

PATIENT
  Sex: Female
  Weight: 53.06 kg

DRUGS (2)
  1. TRACLEER [Concomitant]
     Active Substance: BOSENTAN
     Indication: PRODUCT USED FOR UNKNOWN INDICATION
     Dosage: UNK
     Route: 065
  2. TREPROSTINIL. [Suspect]
     Active Substance: TREPROSTINIL
     Indication: PULMONARY ARTERIAL HYPERTENSION
     Dosage: 124 NANOGRAM PER KILOGRAM (NG/KG/MIN CONTINOUS), CONT
     Route: 042
     Dates: start: 20200217

REACTIONS (4)
  - Vomiting [Unknown]
  - Pain in jaw [Unknown]
  - Nausea [Unknown]
  - Product substitution issue [Unknown]
